FAERS Safety Report 16357809 (Version 1)
Quarter: 2019Q2

REPORT INFORMATION
  Report Type: Spontaneous
  Country: US (occurrence: US)
  Receive Date: 20190527
  Receipt Date: 20190527
  Transmission Date: 20190711
  Serious: Yes (Other)
  Sender: FDA-Public Use
  Company Number: US-PFIZER INC-2019217844

PATIENT
  Age: 35 Year
  Sex: Male

DRUGS (2)
  1. KETAMINE HCL [Suspect]
     Active Substance: KETAMINE HYDROCHLORIDE
     Dosage: UNK UNK, CHRONIC DAILY KETAMINE ABUSE
  2. OXYCODONE [Concomitant]
     Active Substance: OXYCODONE
     Indication: ABDOMINAL PAIN
     Dosage: UNK

REACTIONS (3)
  - Drug abuse [Unknown]
  - Biliary tract disorder [Unknown]
  - Urinary tract disorder [Unknown]
